FAERS Safety Report 6564271-8 (Version None)
Quarter: 2010Q1

REPORT INFORMATION
  Report Type: 
  Country: None (occurrence: None)
  Receive Date: 20100201
  Receipt Date: 20100121
  Transmission Date: 20100710
  Serious: Yes (Other)
  Sender: FDA-Public Use
  Company Number: US-BAYER-201010436NA

PATIENT
  Age: 26 Year
  Sex: Female

DRUGS (1)
  1. MIRENA [Suspect]
     Indication: CONTRACEPTION
     Dosage: CONTINUOUS
     Route: 015
     Dates: start: 20080510, end: 20100101

REACTIONS (6)
  - ABDOMINAL PAIN LOWER [None]
  - MEDICAL DEVICE COMPLICATION [None]
  - PAIN [None]
  - PROCEDURAL PAIN [None]
  - UTERINE PERFORATION [None]
  - VAGINAL HAEMORRHAGE [None]
